FAERS Safety Report 5600525-7 (Version None)
Quarter: 2008Q1

REPORT INFORMATION
  Report Type: 
  Country: None (occurrence: None)
  Receive Date: 20080123
  Receipt Date: 20071224
  Transmission Date: 20080703
  Serious: Yes (Other)
  Sender: FDA-Public Use
  Company Number: TR-BAYER-200810731GPV

PATIENT
  Age: 24 Year
  Sex: Male

DRUGS (3)
  1. NAPROXEN SODIUM [Suspect]
     Indication: DRUG USE FOR UNKNOWN INDICATION
     Route: 065
  2. DICLOFENAC SODIUM [Suspect]
     Indication: DRUG USE FOR UNKNOWN INDICATION
     Route: 065
  3. DIPYRONE [Suspect]
     Indication: ABDOMINAL PAIN
     Route: 042

REACTIONS (4)
  - ABDOMINAL PAIN [None]
  - ANAPHYLACTIC REACTION [None]
  - DRUG INTOLERANCE [None]
  - NEPHROLITHIASIS [None]
